FAERS Safety Report 4992228-7 (Version None)
Quarter: 2006Q2

REPORT INFORMATION
  Report Type: 
  Country: None (occurrence: None)
  Receive Date: 20060502
  Receipt Date: 20060424
  Transmission Date: 20061013
  Serious: Yes (Other)
  Sender: FDA-Public Use
  Company Number: 050160

PATIENT
  Sex: Female

DRUGS (1)
  1. HALFLYTELY [Suspect]
     Indication: COLONOSCOPY

REACTIONS (5)
  - COLITIS ISCHAEMIC [None]
  - DISEASE RECURRENCE [None]
  - DIVERTICULITIS [None]
  - HAEMORRHAGE [None]
  - PAIN [None]
